FAERS Safety Report 6092428-1 (Version None)
Quarter: 2009Q1

REPORT INFORMATION
  Report Type: 
  Country: None (occurrence: None)
  Receive Date: 20090223
  Receipt Date: 20090223
  Transmission Date: 20090719
  Serious: Yes (Other)
  Sender: FDA-Public Use
  Company Number: None

PATIENT
  Sex: Female

DRUGS (3)
  1. FENTANYL TRANSDERMAL SYSTEM [Suspect]
     Indication: NERVE INJURY
     Dosage: 1 PATCH EVERY 3 DAYS TRANSDERMAL
     Route: 062
     Dates: start: 20080612, end: 20090220
  2. FENTANYL TRANSDERMAL SYSTEM [Suspect]
     Indication: PAIN IN EXTREMITY
     Dosage: 1 PATCH EVERY 3 DAYS TRANSDERMAL
     Route: 062
     Dates: start: 20080612, end: 20090220
  3. FENTANYL TRANSDERMAL SYSTEM [Suspect]
     Indication: POST PROCEDURAL COMPLICATION
     Dosage: 1 PATCH EVERY 3 DAYS TRANSDERMAL
     Route: 062
     Dates: start: 20080612, end: 20090220

REACTIONS (7)
  - DEVICE FAILURE [None]
  - DEVICE LEAKAGE [None]
  - DRUG WITHDRAWAL SYNDROME [None]
  - HYPERSENSITIVITY [None]
  - MENTAL IMPAIRMENT [None]
  - OVERDOSE [None]
  - PRODUCT QUALITY ISSUE [None]
